FAERS Safety Report 8212638-4 (Version None)
Quarter: 2012Q1

REPORT INFORMATION
  Report Type: 
  Country: None (occurrence: None)
  Receive Date: 20120315
  Receipt Date: 20120308
  Transmission Date: 20120608
  Serious: Yes (Hospitalization)
  Sender: FDA-Public Use
  Company Number: US-BAYER-2011-063737

PATIENT
  Age: 28 Year
  Sex: Female
  Weight: 76.644 kg

DRUGS (2)
  1. MOTRIN [Concomitant]
     Indication: PAIN
     Dosage: UNK
     Route: 048
     Dates: start: 20090702, end: 20090705
  2. YAZ [Suspect]
     Indication: CONTRACEPTION
     Dosage: UNK
     Dates: start: 20071031, end: 20090705

REACTIONS (4)
  - ATELECTASIS [None]
  - PULMONARY EMBOLISM [None]
  - FLANK PAIN [None]
  - DYSPNOEA [None]
